FAERS Safety Report 6006669-2 (Version None)
Quarter: 2008Q4

REPORT INFORMATION
  Report Type: 
  Country: None (occurrence: None)
  Receive Date: 20081217
  Receipt Date: 20081208
  Transmission Date: 20090506
  Serious: Yes (Hospitalization)
  Sender: FDA-Public Use
  Company Number: AU-ABBOTT-08P-008-0492159-00

PATIENT
  Age: 42 Year
  Sex: Male

DRUGS (2)
  1. LOPINAVIR AND RITONAVIR [Suspect]
     Indication: DRUG USE FOR UNKNOWN INDICATION
     Dosage: THREE DOSES
  2. ABACAVIR SULFATE/LAMIVUDINE [Concomitant]
     Indication: DRUG USE FOR UNKNOWN INDICATION
     Dosage: TWO DOSES

REACTIONS (3)
  - ATRIAL FIBRILLATION [None]
  - SICK SINUS SYNDROME [None]
  - SINUS ARREST [None]
